FAERS Safety Report 15104408 (Version 1)
Quarter: 2018Q3

REPORT INFORMATION
  Report Type: Spontaneous
  Country: IT (occurrence: IT)
  Receive Date: 20180703
  Receipt Date: 20180703
  Transmission Date: 20181010
  Serious: Yes (Other)
  Sender: FDA-Public Use
  Company Number: IT-ELI_LILLY_AND_COMPANY-IT201806014033

PATIENT
  Age: 78 Year
  Sex: Female

DRUGS (8)
  1. FORSTEO 250UG/ML [Suspect]
     Active Substance: TERIPARATIDE
     Indication: OSTEOPOROSIS
     Dosage: UNK UNK, UNKNOWN
     Route: 065
     Dates: start: 20180619
  2. ESOPRAL                            /01479301/ [Concomitant]
     Indication: PRODUCT USED FOR UNKNOWN INDICATION
     Dosage: 20 MG, EACH MORNING
  3. ESOPRAL                            /01479301/ [Concomitant]
     Dosage: 20 MG, EACH EVENING
  4. RIOPAN                             /00141701/ [Concomitant]
     Active Substance: MAGALDRATE
     Indication: PRODUCT USED FOR UNKNOWN INDICATION
     Dosage: AFTER MEAL
  5. XALATAN [Concomitant]
     Active Substance: LATANOPROST
     Indication: GLAUCOMA
  6. DIBASE [Concomitant]
     Active Substance: CHOLECALCIFEROL
     Indication: PRODUCT USED FOR UNKNOWN INDICATION
  7. ZIXOL [Concomitant]
     Indication: PRODUCT USED FOR UNKNOWN INDICATION
  8. XANAX [Concomitant]
     Active Substance: ALPRAZOLAM
     Indication: PRODUCT USED FOR UNKNOWN INDICATION

REACTIONS (7)
  - Pain in extremity [Unknown]
  - Pain [Unknown]
  - Deformity [Unknown]
  - Fatigue [Unknown]
  - Back pain [Unknown]
  - Gait inability [Unknown]
  - Sensory disturbance [Unknown]
